FAERS Safety Report 21724359 (Version 1)
Quarter: 2022Q4

REPORT INFORMATION
  Report Type: Spontaneous
  Country: US (occurrence: US)
  Receive Date: 20221213
  Receipt Date: 20221213
  Transmission Date: 20230113
  Serious: Yes (Hospitalization, Other)
  Sender: FDA-Public Use
  Company Number: None

PATIENT
  Age: 36 Year
  Sex: Female

DRUGS (3)
  1. PREDNISONE [Suspect]
     Active Substance: PREDNISONE
     Indication: Urticaria
  2. DAPSONE [Suspect]
     Active Substance: DAPSONE
     Indication: Urticaria
  3. OMALIZUMAB [Concomitant]
     Active Substance: OMALIZUMAB

REACTIONS (4)
  - Leukocytosis [Unknown]
  - Methaemoglobinaemia [Recovered/Resolved]
  - Haemolysis [Recovered/Resolved]
  - Therapy non-responder [Unknown]
